FAERS Safety Report 9736497 (Version 1)
Quarter: 2013Q4

REPORT INFORMATION
  Report Type: Spontaneous
  Country: DE (occurrence: DE)
  Receive Date: 20131206
  Receipt Date: 20131206
  Transmission Date: 20140711
  Serious: Yes (Hospitalization, Congenital Anomaly, Other)
  Sender: FDA-Public Use
  Company Number: DE-PFIZER INC-2013341782

PATIENT
  Age: 1 Day
  Sex: Male
  Weight: 4.51 kg

DRUGS (4)
  1. HYDROCORTISONE [Suspect]
     Indication: ADRENOCORTICOTROPIC HORMONE DEFICIENCY
     Dosage: 1ST TRIMESTER: 30 MG/D, 2ND TRIMESTER: 45 MG/D, 3RD TRIMESTER: 75 MG/D
     Route: 064
  2. IDEOS [Concomitant]
     Indication: OSTEOPOROSIS
     Dosage: 1000 MG/D/ 400 IU, 2X/DAY, LONG TERM EXPOSURE
     Route: 064
  3. PARACETAMOL [Concomitant]
     Indication: PAIN
     Dosage: 500 MG, FIRST TRIMESTER
     Route: 064
  4. FEMIBION [Concomitant]
     Indication: PROPHYLAXIS OF NEURAL TUBE DEFECT
     Dosage: UNK, LONG TERM EXPOSURE
     Route: 064

REACTIONS (8)
  - Patent ductus arteriosus [Recovered/Resolved]
  - Hypoglycaemia neonatal [Recovered/Resolved]
  - Premature baby [Recovered/Resolved]
  - Neonatal respiratory distress syndrome [Recovered/Resolved]
  - Large for dates baby [Unknown]
  - Atrial septal defect [Not Recovered/Not Resolved]
  - Blood cortisol decreased [Recovering/Resolving]
  - Cardiac septal hypertrophy [Unknown]
